FAERS Safety Report 8267353-8 (Version None)
Quarter: 2012Q2

REPORT INFORMATION
  Report Type: 
  Country: None (occurrence: None)
  Receive Date: 20120409
  Receipt Date: 20120329
  Transmission Date: 20120825
  Serious: Yes (Other)
  Sender: FDA-Public Use
  Company Number: PHHY2011JP099715

PATIENT
  Sex: Female
  Weight: 75 kg

DRUGS (14)
  1. CLOZARIL [Suspect]
     Dosage: 100 MG
     Route: 048
     Dates: start: 20110526, end: 20110527
  2. CLOZARIL [Suspect]
     Dosage: 175 MG
     Route: 048
     Dates: start: 20110603, end: 20110605
  3. CLOZARIL [Suspect]
     Dosage: 400 MG
     Route: 048
     Dates: start: 20110726, end: 20111103
  4. CLOZARIL [Suspect]
     Indication: SCHIZOPHRENIA, PARANOID TYPE
     Dosage: 12.5 MG
     Route: 048
     Dates: start: 20110517, end: 20110517
  5. CLOZARIL [Suspect]
     Dosage: 25 MG
     Route: 048
     Dates: start: 20110518, end: 20110518
  6. CLOZARIL [Suspect]
     Dosage: 300 MG
     Route: 048
     Dates: start: 20110627, end: 20110725
  7. LEVOTOMIN [Concomitant]
     Indication: SCHIZOPHRENIA, PARANOID TYPE
     Dosage: 75 MG, UNK
     Dates: start: 20110826, end: 20110826
  8. CLOZARIL [Suspect]
     Dosage: 50 MG
     Route: 048
     Dates: start: 20110519, end: 20110520
  9. CLOZARIL [Suspect]
     Dosage: 75 MG
     Route: 048
     Dates: start: 20110521, end: 20110525
  10. CLOZARIL [Suspect]
     Dosage: 125 MG
     Route: 048
     Dates: start: 20110528, end: 20110530
  11. CLOZARIL [Suspect]
     Dosage: 200 MG
     Route: 048
     Dates: start: 20110606, end: 20110626
  12. ROHYPNOL [Concomitant]
     Indication: INSOMNIA
     Dosage: 2 MG, UNK
     Route: 048
     Dates: start: 20110517
  13. CLOZARIL [Suspect]
     Dosage: 150 MG
     Route: 048
     Dates: start: 20110531, end: 20110602
  14. LENDORMIN [Concomitant]
     Indication: INSOMNIA
     Dosage: 0.25 MG, UNK
     Route: 048
     Dates: start: 20110517

REACTIONS (6)
  - SEDATION [None]
  - MYOCLONUS [None]
  - HAEMOGLOBIN DECREASED [None]
  - DEPRESSED LEVEL OF CONSCIOUSNESS [None]
  - DECREASED APPETITE [None]
  - HYPERTENSION [None]
